FAERS Safety Report 6589317-2 (Version None)
Quarter: 2010Q1

REPORT INFORMATION
  Report Type: 
  Country: None (occurrence: None)
  Receive Date: 20100218
  Receipt Date: 20100208
  Transmission Date: 20100710
  Serious: Yes (Other)
  Sender: FDA-Public Use
  Company Number: US-PFIZER INC-2009268406

PATIENT
  Sex: Female
  Weight: 63.492 kg

DRUGS (11)
  1. LYRICA [Suspect]
     Indication: FIBROMYALGIA
     Dosage: 50 MG, 1X/DAY
     Route: 048
     Dates: start: 20090701
  2. TYSABRI [Concomitant]
     Indication: MULTIPLE SCLEROSIS
     Dosage: UNK, EVERY 28 DAYS
  3. DARVOCET [Concomitant]
     Dosage: 50 MG, EVERY 4-6 HOURS
  4. AMITRIPTYLINE [Concomitant]
     Indication: SLEEP DISORDER
     Dosage: 25 MG, AT NIGHT
  5. AMITRIPTYLINE [Concomitant]
     Indication: MUSCLE SPASMS
  6. ARICEPT [Concomitant]
     Indication: MEMORY IMPAIRMENT
     Dosage: 10MG, DAILY AT NIGHT
  7. MECLIZINE [Concomitant]
     Indication: VERTIGO
  8. MECLIZINE [Concomitant]
     Indication: DIZZINESS
  9. OXYBUTYNIN [Concomitant]
     Indication: BLADDER DISORDER
     Dosage: 5 MG, 1X/DAY
     Route: 048
  10. OXYBUTYNIN [Concomitant]
     Dosage: 10 MG, 1X/DAY
     Route: 048
  11. DEPAKOTE [Concomitant]
     Indication: HEADACHE
     Dosage: 500 MG, 2X/DAY
     Route: 048

REACTIONS (7)
  - CONFUSIONAL STATE [None]
  - DIZZINESS [None]
  - INTERVERTEBRAL DISC DEGENERATION [None]
  - LOSS OF CONSCIOUSNESS [None]
  - NEUROPATHY PERIPHERAL [None]
  - PERIPHERAL COLDNESS [None]
  - WEIGHT INCREASED [None]
